FAERS Safety Report 10677249 (Version 1)
Quarter: 2014Q4

REPORT INFORMATION
  Report Type: Not Available
  Country: KR (occurrence: KR)
  Receive Date: 20141226
  Receipt Date: 20141226
  Transmission Date: 20150529
  Serious: Yes (Hospitalization)
  Sender: FDA-Public Use
  Company Number: KR-ABBVIE-14P-090-1326342-00

PATIENT
  Sex: Male

DRUGS (26)
  1. VESICARE [Concomitant]
     Active Substance: SOLIFENACIN SUCCINATE
     Indication: BENIGN PROSTATIC HYPERPLASIA
     Route: 048
     Dates: start: 20130116
  2. ADISEN [Concomitant]
     Indication: NECK PAIN
     Route: 048
     Dates: start: 20140919
  3. ASPIRIN. [Concomitant]
     Active Substance: ASPIRIN
     Indication: PROPHYLAXIS
  4. LODINE [Concomitant]
     Active Substance: ETODOLAC
     Indication: ARTHRALGIA
     Route: 048
     Dates: start: 20141128
  5. GABAPENTIN. [Concomitant]
     Active Substance: GABAPENTIN
     Indication: NECK PAIN
     Route: 048
     Dates: start: 20130312, end: 20141127
  6. HYTRIN [Concomitant]
     Active Substance: TERAZOSIN HYDROCHLORIDE
     Indication: BENIGN PROSTATIC HYPERPLASIA
     Route: 048
     Dates: start: 20100226
  7. SOLIFENACIN SUCCINATE [Concomitant]
     Active Substance: SOLIFENACIN SUCCINATE
     Indication: CARDIOVASCULAR DISORDER
  8. TACENOL [Concomitant]
     Indication: ARTHRALGIA
     Route: 048
     Dates: start: 20140903
  9. ARAVA [Concomitant]
     Active Substance: LEFLUNOMIDE
     Indication: ARTHRALGIA
     Route: 048
     Dates: start: 20110316
  10. SOLIFENACIN SUCCINATE [Concomitant]
     Active Substance: SOLIFENACIN SUCCINATE
     Indication: RESPIRATORY DISORDER
     Route: 048
     Dates: start: 20141017
  11. TACENOL [Concomitant]
     Indication: PROPHYLAXIS
  12. MOTESON [Concomitant]
     Indication: VASOMOTOR RHINITIS
     Route: 045
     Dates: start: 20141017
  13. STILLEN [Concomitant]
     Indication: PROPHYLAXIS
  14. ASPIRIN. [Concomitant]
     Active Substance: ASPIRIN
     Indication: PROPHYLAXIS
     Route: 048
     Dates: start: 20080613
  15. ALLED [Concomitant]
     Indication: PRURITUS
     Route: 048
     Dates: start: 20140930
  16. TEVETEN [Suspect]
     Active Substance: EPROSARTAN MESYLATE
     Indication: PRODUCT USED FOR UNKNOWN INDICATION
     Route: 048
     Dates: start: 20140901
  17. ANOREX [Concomitant]
     Active Substance: PHENMETRAZINE HYDROCHLORIDE
     Indication: NECK PAIN
     Route: 048
     Dates: start: 20090121, end: 20141127
  18. FOLIC ACID. [Concomitant]
     Active Substance: FOLIC ACID
     Indication: ARTHRALGIA
     Route: 048
     Dates: start: 20120314
  19. STILLEN [Concomitant]
     Indication: GASTRIC DISORDER
     Route: 048
     Dates: start: 20090121, end: 20141127
  20. LIMADIN [Concomitant]
     Indication: NECK PAIN
     Route: 048
     Dates: start: 20140919
  21. SOLIFENACIN SUCCINATE [Concomitant]
     Active Substance: SOLIFENACIN SUCCINATE
     Indication: CARDIOVASCULAR DISORDER
     Route: 048
     Dates: start: 20110316
  22. SOLIFENACIN SUCCINATE [Concomitant]
     Active Substance: SOLIFENACIN SUCCINATE
     Indication: VASOMOTOR RHINITIS
     Dosage: SYRUP
     Route: 048
     Dates: start: 20140912
  23. SOLIFENACIN SUCCINATE [Concomitant]
     Active Substance: SOLIFENACIN SUCCINATE
     Indication: DERMATITIS
     Dosage: TOPICAL (EAR)
     Route: 061
     Dates: start: 20141017, end: 20141017
  24. SOLIFENACIN SUCCINATE [Concomitant]
     Active Substance: SOLIFENACIN SUCCINATE
     Indication: NECK PAIN
     Route: 048
     Dates: start: 20140930
  25. TALION [Concomitant]
     Active Substance: BEPOTASTINE
     Indication: VASOMOTOR RHINITIS
     Route: 048
     Dates: start: 20140912
  26. RHINOVENT [Concomitant]
     Indication: VASOMOTOR RHINITIS
     Dosage: NASAL SOLUTION
     Route: 045
     Dates: start: 20140912

REACTIONS (1)
  - Large intestine polyp [Recovered/Resolved]

NARRATIVE: CASE EVENT DATE: 2014
